FAERS Safety Report 8247182-1 (Version None)
Quarter: 2012Q1

REPORT INFORMATION
  Report Type: 
  Country: None (occurrence: None)
  Receive Date: 20120330
  Receipt Date: 20120326
  Transmission Date: 20120608
  Serious: Yes (Death, Life-Threatening)
  Sender: FDA-Public Use
  Company Number: JP-ELI_LILLY_AND_COMPANY-JP201202005449

PATIENT
  Sex: Male
  Weight: 60.4 kg

DRUGS (13)
  1. DECADRON [Concomitant]
     Indication: PROPHYLAXIS
     Dosage: 20 MG, UNK
     Route: 042
     Dates: start: 20100108, end: 20100218
  2. DAIKENTYUTO [Concomitant]
     Dosage: 2.5 G, TID
     Route: 048
  3. PACLITAXEL [Concomitant]
     Indication: TRANSITIONAL CELL CARCINOMA
     Dosage: 140 MG, UNK
     Route: 042
     Dates: start: 20100108, end: 20100218
  4. LANSOPRAZOLE [Concomitant]
     Dosage: 15 MG, UNK
     Route: 048
  5. GRANISETRON [Concomitant]
     Indication: PROPHYLAXIS
     Dosage: UNK
     Dates: start: 20100108, end: 20100218
  6. ZANTAC [Concomitant]
     Indication: PROPHYLAXIS
     Dosage: 50 MG, UNK
     Route: 042
     Dates: start: 20100108, end: 20100218
  7. BASEN [Concomitant]
     Dosage: 0.2 MG, TID
     Route: 048
  8. OXYCONTIN [Concomitant]
     Dosage: 5 MG, BID
     Route: 048
     Dates: start: 20100227
  9. GEMZAR [Suspect]
     Indication: TRANSITIONAL CELL CARCINOMA
     Dosage: UNK
     Route: 042
     Dates: start: 20090630, end: 20091121
  10. RESTAMIN [Concomitant]
     Indication: PROPHYLAXIS
     Dosage: 50 MG, UNK
     Route: 048
     Dates: start: 20100108, end: 20100218
  11. GEMZAR [Suspect]
     Dosage: 1600 MG, UNK
     Route: 042
     Dates: start: 20100108, end: 20100218
  12. CISPLATIN [Concomitant]
     Indication: TRANSITIONAL CELL CARCINOMA
     Dosage: UNK
     Route: 042
     Dates: start: 20090630, end: 20091121
  13. CLONAZEPAM [Concomitant]
     Dosage: 0.5 MG, UNK
     Route: 048
     Dates: start: 20100301

REACTIONS (3)
  - INTERSTITIAL LUNG DISEASE [None]
  - WHITE BLOOD CELL COUNT DECREASED [None]
  - RESPIRATORY FAILURE [None]
